FAERS Safety Report 14582466 (Version 7)
Quarter: 2020Q1

REPORT INFORMATION
  Report Type: Spontaneous
  Country: DE (occurrence: DE)
  Receive Date: 20180228
  Receipt Date: 20200219
  Transmission Date: 20200409
  Serious: Yes (Death, Hospitalization)
  Sender: FDA-Public Use
  Company Number: PHHY2017DE201346

PATIENT
  Age: 73 Year
  Sex: Female
  Weight: 60 kg

DRUGS (23)
  1. PANTOPRAZOLE [Concomitant]
     Active Substance: PANTOPRAZOLE
     Indication: GASTROOESOPHAGEAL REFLUX DISEASE
     Dosage: 40 MG, QD
     Route: 048
     Dates: end: 2017
  2. TILIDIN [Concomitant]
     Active Substance: NALOXONE HYDROCHLORIDE\TILIDINE HYDROCHLORIDE
     Indication: ABDOMINAL PAIN
     Dosage: 4 MG, QD
     Route: 048
     Dates: start: 20170619, end: 20170619
  3. ALOXI [Concomitant]
     Active Substance: PALONOSETRON HYDROCHLORIDE
     Indication: PROPHYLAXIS
  4. SOLU-DECORTIN [Concomitant]
     Active Substance: PREDNISOLONE SODIUM SUCCINATE
     Indication: PROPHYLAXIS
     Dosage: 100 MG
     Route: 041
     Dates: start: 20170216, end: 20170729
  5. RANITIC [Concomitant]
     Active Substance: RANITIDINE HYDROCHLORIDE
     Indication: PROPHYLAXIS
     Dosage: 50 MG
     Route: 041
     Dates: start: 20170216, end: 20170629
  6. DEXAMETHASONE. [Concomitant]
     Active Substance: DEXAMETHASONE
     Dosage: 4 MG
     Route: 048
     Dates: start: 20170215, end: 2017
  7. METOPROLOL. [Concomitant]
     Active Substance: METOPROLOL
     Indication: ESSENTIAL HYPERTENSION
     Dosage: 100 MG, QD
     Route: 048
     Dates: end: 2017
  8. KEVATRIL [Concomitant]
     Active Substance: GRANISETRON HYDROCHLORIDE
     Indication: PROPHYLAXIS
     Dosage: 1 MG
     Route: 041
     Dates: start: 20170216, end: 20170330
  9. ABRAXANE [Suspect]
     Active Substance: PACLITAXEL
     Dosage: 100 MG/SQ. METER
     Route: 041
     Dates: start: 20170330, end: 20170629
  10. SIMVASTATIN. [Concomitant]
     Active Substance: SIMVASTATIN
     Indication: PROPHYLAXIS
     Dosage: 20 MILLIGRAM
     Route: 048
     Dates: end: 2017
  11. MCP [Concomitant]
     Active Substance: METOCLOPRAMIDE HYDROCHLORIDE
     Indication: PROPHYLAXIS
     Dosage: 10 MG
     Route: 048
     Dates: start: 20170216, end: 2017
  12. ABRAXANE [Suspect]
     Active Substance: PACLITAXEL
     Dosage: 100 MG/M2, QW
     Route: 041
     Dates: start: 20170216
  13. TILIDIN [Concomitant]
     Active Substance: NALOXONE HYDROCHLORIDE\TILIDINE HYDROCHLORIDE
     Indication: MUSCLE SPASMS
  14. CLEXANE [Concomitant]
     Active Substance: ENOXAPARIN SODIUM
     Indication: THROMBOSIS
     Dosage: 1.2 MILLILITER
     Route: 058
     Dates: start: 201701, end: 201707
  15. CLEXANE [Concomitant]
     Active Substance: ENOXAPARIN SODIUM
     Indication: VENA CAVA THROMBOSIS
  16. DEXAMETHASONE. [Concomitant]
     Active Substance: DEXAMETHASONE
     Indication: PROPHYLAXIS
     Dosage: 2 MG, QD
     Route: 048
     Dates: end: 20170215
  17. NOVALGIN [Concomitant]
     Indication: MUSCULOSKELETAL CHEST PAIN
     Dosage: 500 MG
     Route: 048
     Dates: end: 2017
  18. CARBOPLATIN. [Suspect]
     Active Substance: CARBOPLATIN
     Indication: NON-SMALL CELL LUNG CANCER
     Dosage: 1 DF, QD, (3 MG/MIN/ML)
     Route: 041
     Dates: start: 20170216, end: 20170629
  19. ABRAXANE [Suspect]
     Active Substance: PACLITAXEL
     Indication: NON-SMALL CELL LUNG CANCER
     Dosage: 100 MG/M2, QW
     Route: 041
     Dates: start: 20170309, end: 20170309
  20. FENISTIL [Concomitant]
     Active Substance: DIMETHINDENE
     Indication: PROPHYLAXIS
     Dosage: 4 MILLIGRAM
     Route: 041
     Dates: start: 20170216, end: 20170629
  21. PANTOPRAZOLE [Concomitant]
     Active Substance: PANTOPRAZOLE
     Dosage: 20 MG, QD
     Route: 048
     Dates: end: 2017
  22. ALOXI [Concomitant]
     Active Substance: PALONOSETRON HYDROCHLORIDE
     Indication: MUCOSAL INFLAMMATION
     Dosage: 250 UG, QD
     Route: 041
     Dates: start: 20170406, end: 20170629
  23. DEXAMETHASONE. [Concomitant]
     Active Substance: DEXAMETHASONE
     Dosage: 4 MG, QD
     Route: 048
     Dates: start: 20170216, end: 20170703

REACTIONS (8)
  - Alopecia [Recovered/Resolved]
  - Dizziness [Recovered/Resolved]
  - Mucosal inflammation [Recovered/Resolved]
  - Non-small cell lung cancer [Fatal]
  - Fatigue [Recovered/Resolved]
  - Non-cardiac chest pain [Not Recovered/Not Resolved]
  - Asthenia [Recovered/Resolved]
  - Bronchial carcinoma [Fatal]

NARRATIVE: CASE EVENT DATE: 2017
